FAERS Safety Report 10305511 (Version 1)
Quarter: 2014Q3

REPORT INFORMATION
  Report Type: Spontaneous
  Country: FR (occurrence: FR)
  Receive Date: 20140715
  Receipt Date: 20140715
  Transmission Date: 20150326
  Serious: Yes (Hospitalization)
  Sender: FDA-Public Use
  Company Number: FR-SA-2014SA088987

PATIENT
  Age: 81 Year
  Sex: Female

DRUGS (10)
  1. OFLOCET [Suspect]
     Active Substance: OFLOXACIN
     Indication: STAPHYLOCOCCAL INFECTION
     Route: 048
     Dates: start: 20140513, end: 20140519
  2. VANCOMYCINE [Suspect]
     Active Substance: VANCOMYCIN
     Indication: STAPHYLOCOCCAL INFECTION
     Route: 065
     Dates: start: 20140430, end: 20140430
  3. ASCABIOL [Suspect]
     Active Substance: BENZYL BENZOATE
     Indication: STAPHYLOCOCCAL INFECTION
     Route: 065
     Dates: start: 20140501, end: 20140507
  4. ATENOLOL. [Concomitant]
     Active Substance: ATENOLOL
     Dates: end: 20140519
  5. GENTAMICIN [Suspect]
     Active Substance: GENTAMICIN
     Indication: STAPHYLOCOCCAL INFECTION
     Route: 065
     Dates: start: 20140501, end: 20140501
  6. BRISTOPEN [Suspect]
     Active Substance: OXACILLIN SODIUM
     Indication: STAPHYLOCOCCAL INFECTION
     Route: 042
     Dates: start: 20140501, end: 20140513
  7. TAREG [Concomitant]
     Active Substance: VALSARTAN
     Dates: end: 20140519
  8. CORTICOSTEROIDS, DERMATOLOGICAL PREPARATIONS [Concomitant]
     Active Substance: UNSPECIFIED INGREDIENT
  9. RIFAMPICIN [Suspect]
     Active Substance: RIFAMPIN
     Route: 065
     Dates: start: 20140506, end: 20140519
  10. STROMECTOL [Suspect]
     Active Substance: IVERMECTIN
     Indication: STAPHYLOCOCCAL INFECTION
     Route: 065
     Dates: start: 20140501, end: 20140506

REACTIONS (15)
  - Anuria [Recovering/Resolving]
  - Blood creatinine increased [Recovered/Resolved]
  - Pruritus generalised [Recovered/Resolved]
  - Blood potassium increased [Unknown]
  - Body temperature increased [Recovered/Resolved]
  - Blister [Recovered/Resolved]
  - Haemodynamic instability [Unknown]
  - Blood pressure decreased [Unknown]
  - Eczema [Recovered/Resolved]
  - Eosinophilia [Recovered/Resolved]
  - Feeling hot [Recovered/Resolved]
  - Dermatitis exfoliative [Recovered/Resolved]
  - Acarodermatitis [Recovered/Resolved]
  - Rash macular [Recovered/Resolved]
  - Skin exfoliation [Recovered/Resolved]

NARRATIVE: CASE EVENT DATE: 20140516
